FAERS Safety Report 5967436-9 (Version None)
Quarter: 2008Q4

REPORT INFORMATION
  Report Type: 
  Country: None (occurrence: None)
  Receive Date: 20081125
  Receipt Date: 20081121
  Transmission Date: 20090506
  Serious: Yes (Other)
  Sender: FDA-Public Use
  Company Number: US-GILEAD-2008-0018386

PATIENT
  Sex: Female
  Weight: 54.48 kg

DRUGS (6)
  1. LETAIRIS [Suspect]
     Indication: PULMONARY HYPERTENSION
     Route: 048
     Dates: start: 20080507
  2. CLONAZEPAM [Concomitant]
     Indication: ANXIETY
     Dates: start: 20080706
  3. CITALOPRAM HYDROBROMIDE [Concomitant]
     Indication: ANXIETY
     Dates: start: 20080615
  4. SIMVASTATIN [Concomitant]
     Indication: CORONARY ARTERY DISEASE
     Dates: start: 20080212
  5. CYANOCOBALAMIN [Concomitant]
     Indication: VITAMIN B12 DEFICIENCY
     Dates: start: 20081030
  6. LEVORA 0.15/30-28 [Concomitant]
     Indication: CONTRACEPTION
     Dates: start: 20080507

REACTIONS (2)
  - DIZZINESS [None]
  - SYNCOPE [None]
